FAERS Safety Report 6136944-2 (Version None)
Quarter: 2009Q1

REPORT INFORMATION
  Report Type: 
  Country: None (occurrence: None)
  Receive Date: 20090330
  Receipt Date: 20090320
  Transmission Date: 20090719
  Serious: Yes (Other)
  Sender: FDA-Public Use
  Company Number: FR-ELI_LILLY_AND_COMPANY-FR200902001602

PATIENT
  Age: 80 Year
  Sex: Female

DRUGS (3)
  1. FORTEO [Suspect]
     Indication: OSTEOPOROSIS
     Dosage: 20 UG, DAILY (1/D)
     Route: 065
     Dates: start: 20080130
  2. UVEDOSE [Concomitant]
     Indication: HYPOVITAMINOSIS
     Dosage: 1 D/F, MONTHLY (1/M)
     Route: 048
     Dates: start: 20090101
  3. CACIT D3 [Concomitant]
     Indication: HYPOVITAMINOSIS
     Dosage: 1000 MG, DAILY (1/D)
     Route: 048
     Dates: start: 20080101

REACTIONS (2)
  - APHASIA [None]
  - HYPOTENSION [None]
